FAERS Safety Report 7493831-5 (Version None)
Quarter: 2011Q2

REPORT INFORMATION
  Report Type: 
  Country: None (occurrence: None)
  Receive Date: 20110513
  Receipt Date: 20110505
  Transmission Date: 20111010
  Serious: Yes (Death)
  Sender: FDA-Public Use
  Company Number: TRP_07727_2011

PATIENT
  Age: 43 Year
  Sex: Female

DRUGS (1)
  1. AMPHOTERICIN B [Suspect]
     Indication: BRONCHOPULMONARY ASPERGILLOSIS
     Dosage: (35 MG PER DAY FOR 3 MONTHS)
     Dates: start: 20090901, end: 20091201

REACTIONS (6)
  - RENAL IMPAIRMENT [None]
  - ASPHYXIA [None]
  - PELVIC HAEMATOMA [None]
  - LYMPHANGIOLEIOMYOMATOSIS [None]
  - HAEMOPTYSIS [None]
  - DISEASE RECURRENCE [None]
